FAERS Safety Report 4805330-7 (Version None)
Quarter: 2005Q4

REPORT INFORMATION
  Report Type: 
  Country: None (occurrence: None)
  Receive Date: 20051017
  Receipt Date: 20051003
  Transmission Date: 20060501
  Serious: Yes (Other)
  Sender: FDA-Public Use
  Company Number: US016150

PATIENT
  Age: 22 Year
  Sex: Male

DRUGS (1)
  1. PROVIGIL [Suspect]
     Indication: NARCOLEPSY
     Dosage: 8000 MG ONCE ORAL
     Route: 048

REACTIONS (4)
  - AMMONIA INCREASED [None]
  - BLOOD PRESSURE DECREASED [None]
  - METABOLIC ACIDOSIS [None]
  - OVERDOSE [None]
